FAERS Safety Report 6718135-7 (Version None)
Quarter: 2010Q2

REPORT INFORMATION
  Report Type: 
  Country: None (occurrence: None)
  Receive Date: 20100510
  Receipt Date: 20100428
  Transmission Date: 20101027
  Serious: Yes (Other)
  Sender: FDA-Public Use
  Company Number: B0633184A

PATIENT
  Sex: Male

DRUGS (6)
  1. SERETIDE [Suspect]
     Indication: CHRONIC OBSTRUCTIVE PULMONARY DISEASE
     Dosage: 200MCG PER DAY
     Route: 055
     Dates: start: 20090511
  2. SERETIDE [Suspect]
     Dosage: 500MCG PER DAY
     Route: 055
     Dates: start: 20090618, end: 20090715
  3. ADOAIR [Concomitant]
     Dosage: 1000MCG PER DAY
     Route: 055
     Dates: start: 20090520, end: 20090617
  4. THEO-DUR [Concomitant]
     Dosage: 200MG PER DAY
     Route: 048
     Dates: start: 20090511, end: 20090617
  5. CLARITH [Concomitant]
     Dosage: 400MG PER DAY
     Route: 048
     Dates: start: 20090511, end: 20090617
  6. SINGULAIR [Concomitant]
     Dosage: 10MG PER DAY
     Route: 048
     Dates: start: 20090511, end: 20090617

REACTIONS (4)
  - BLOOD THYROID STIMULATING HORMONE INCREASED [None]
  - HYPOTHYROIDISM [None]
  - THYROXINE FREE DECREASED [None]
  - WEIGHT INCREASED [None]
